FAERS Safety Report 7033948-2 (Version None)
Quarter: 2010Q4

REPORT INFORMATION
  Report Type: 
  Country: None (occurrence: None)
  Receive Date: 20101007
  Receipt Date: 20101004
  Transmission Date: 20110411
  Serious: Yes (Death)
  Sender: FDA-Public Use
  Company Number: FR-MERCK-1010FRA00002

PATIENT
  Age: 51 Year
  Sex: Male

DRUGS (8)
  1. ISENTRESS [Suspect]
     Indication: HIV INFECTION
     Route: 048
     Dates: start: 20100708, end: 20100918
  2. LOPINAVIR AND RITONAVIR [Suspect]
     Indication: HIV INFECTION
     Route: 048
     Dates: start: 20100708, end: 20100909
  3. LAMIVUDINE [Suspect]
     Indication: HIV INFECTION
     Route: 048
     Dates: start: 20100708, end: 20100918
  4. ABACAVIR SULFATE [Suspect]
     Indication: HIV INFECTION
     Route: 048
     Dates: start: 20100708, end: 20100918
  5. CHLORPROMAZINE HYDROCHLORIDE [Suspect]
     Route: 048
     Dates: start: 20100902, end: 20100918
  6. AMIKACIN SULFATE [Suspect]
     Route: 042
     Dates: start: 20100908, end: 20100915
  7. SULFAMETHOXAZOLE AND TRIMETHOPRIM [Concomitant]
     Route: 065
     Dates: start: 20100613, end: 20100830
  8. LORAZEPAM [Concomitant]
     Route: 065
     Dates: start: 20100818, end: 20100918

REACTIONS (2)
  - HEPATIC FAILURE [None]
  - HEPATITIS FULMINANT [None]
